FAERS Safety Report 13296123 (Version 2)
Quarter: 2017Q3

REPORT INFORMATION
  Report Type: Spontaneous
  Country: US (occurrence: US)
  Receive Date: 20170304
  Receipt Date: 20170927
  Transmission Date: 20171127
  Serious: No
  Sender: FDA-Public Use
  Company Number: US-BRISTOL-MYERS SQUIBB COMPANY-BMS-2017-017791

PATIENT
  Age: 71 Year
  Sex: Female

DRUGS (1)
  1. SPRYCEL [Suspect]
     Active Substance: DASATINIB
     Indication: CHRONIC MYELOID LEUKAEMIA
     Dosage: 1 TAB, QD
     Route: 048
     Dates: start: 20170130

REACTIONS (4)
  - Diarrhoea [Unknown]
  - Headache [Unknown]
  - Bone pain [Unknown]
  - Constipation [Unknown]

NARRATIVE: CASE EVENT DATE: 20170806
